FAERS Safety Report 16509938 (Version 8)
Quarter: 2019Q4

REPORT INFORMATION
  Report Type: Report from Study
  Country: CO (occurrence: CO)
  Receive Date: 20190702
  Receipt Date: 20191210
  Transmission Date: 20200122
  Serious: Yes (Hospitalization)
  Sender: FDA-Public Use
  Company Number: CO-SA-2018SA301437

PATIENT
  Age: 44 Year
  Sex: Female

DRUGS (2)
  1. ALEMTUZUMAB [Suspect]
     Active Substance: ALEMTUZUMAB
     Indication: MULTIPLE SCLEROSIS
     Dosage: 12 MG, QD
     Route: 041
     Dates: start: 20181029, end: 20181102
  2. PREGABALIN. [Concomitant]
     Active Substance: PREGABALIN
     Indication: PAIN
     Dosage: 200 MG, QD
     Route: 048

REACTIONS (36)
  - Leukocyturia [Recovered/Resolved]
  - Spinal pain [Recovered/Resolved]
  - Hypoaesthesia [Recovered/Resolved]
  - Pain [Recovered/Resolved]
  - Gait disturbance [Recovered/Resolved]
  - Paraesthesia [Recovered/Resolved]
  - Red blood cells urine positive [Recovered/Resolved]
  - Chest discomfort [Recovered/Resolved]
  - Monocyte morphology abnormal [Recovered/Resolved]
  - Paraesthesia [Recovering/Resolving]
  - Chest discomfort [Recovered/Resolved]
  - Musculoskeletal pain [Recovered/Resolved]
  - Dyspnoea [Recovered/Resolved]
  - Malaise [Unknown]
  - Lymphocyte morphology abnormal [Not Recovered/Not Resolved]
  - Diarrhoea [Recovered/Resolved]
  - Influenza [Recovered/Resolved]
  - Cough [Recovered/Resolved]
  - Joint injury [Recovered/Resolved]
  - Crystal urine present [Recovered/Resolved]
  - White blood cell count decreased [Not Recovered/Not Resolved]
  - Nasal congestion [Recovered/Resolved]
  - Asthenia [Recovered/Resolved]
  - Lymphocyte count decreased [Recovered/Resolved]
  - Fall [Recovered/Resolved]
  - Malaise [Recovering/Resolving]
  - Palpitations [Recovered/Resolved]
  - Pain [Unknown]
  - Burning sensation [Recovered/Resolved]
  - Muscle fatigue [Recovered/Resolved]
  - Neutrophil toxic granulation present [Recovered/Resolved]
  - Bacteriuria [Unknown]
  - Dysphonia [Recovered/Resolved]
  - Urine analysis abnormal [Unknown]
  - Red blood cell sedimentation rate increased [Recovered/Resolved]
  - Neutrophil count decreased [Recovered/Resolved]

NARRATIVE: CASE EVENT DATE: 20181030
